FAERS Safety Report 15155245 (Version 2)
Quarter: 2019Q1

REPORT INFORMATION
  Report Type: Spontaneous
  Country: BR (occurrence: BR)
  Receive Date: 20180717
  Receipt Date: 20190206
  Transmission Date: 20190417
  Serious: Yes (Hospitalization, Other)
  Sender: FDA-Public Use
  Company Number: BR-SA-2018SA183304

PATIENT
  Sex: Female
  Weight: 64 kg

DRUGS (1)
  1. CLEXANE [Suspect]
     Active Substance: ENOXAPARIN SODIUM
     Indication: PROPHYLAXIS
     Dosage: 1 DF, QD
     Route: 030
     Dates: start: 20180702

REACTIONS (4)
  - Hospitalisation [Unknown]
  - Product use issue [Unknown]
  - Exposure during pregnancy [Unknown]
  - Adverse event [Unknown]
